FAERS Safety Report 6474617-7 (Version None)
Quarter: 2009Q4

REPORT INFORMATION
  Report Type: 
  Country: None (occurrence: None)
  Receive Date: 20091204
  Receipt Date: 20090428
  Transmission Date: 20100525
  Serious: Yes (Hospitalization)
  Sender: FDA-Public Use
  Company Number: US-ELI_LILLY_AND_COMPANY-US200901001482

PATIENT
  Sex: Female
  Weight: 101.13 kg

DRUGS (21)
  1. HUMALOG [Suspect]
  2. PROTONIX [Concomitant]
     Dosage: 40 MG, DAILY (1/D)
     Route: 048
  3. CALCIUM W/VITAMIN D /00188401/ [Concomitant]
     Dosage: UNK, UNK
     Route: 048
  4. XOLOF [Concomitant]
     Dosage: 0.5 MG, 3/D
  5. CORDOVAL [Concomitant]
     Dosage: 100 MG, DAILY (1/D)
     Route: 048
  6. COREG [Concomitant]
     Dosage: 12.5 MG, DAILY (1/D)
     Route: 048
  7. SEROQUEL [Concomitant]
     Dosage: 5 MG, 2/D
     Route: 048
  8. FOLIC ACID [Concomitant]
     Dosage: 800 MG, DAILY (1/D)
     Route: 048
  9. IMDUR [Concomitant]
     Dosage: 30 MG, EACH EVENING
     Route: 048
  10. LIPITOR [Concomitant]
     Dosage: 80 MG, EACH EVENING
     Route: 048
  11. OMEGA-3 FATTY ACIDS [Concomitant]
     Dosage: UNK, DAILY (1/D)
     Route: 048
  12. NEURONTIN [Concomitant]
     Dosage: 300 MG, 3/D
     Route: 048
  13. ASCORBIC ACID [Concomitant]
     Dosage: 1000 MG, 3/D
     Route: 048
  14. POTASSIUM CHLORIDE [Concomitant]
     Dosage: 10 MG, 2/D
     Route: 048
  15. ULTRAM [Concomitant]
     Dosage: 50 MG, EVERY 6 HRS
     Route: 048
  16. FE [Concomitant]
     Dosage: 27 MG, DAILY (1/D)
  17. PROZAC [Concomitant]
  18. PLAVIX [Concomitant]
     Dosage: 75 MG, DAILY (1/D)
  19. PRIMIDONE [Concomitant]
     Dosage: 100 MG, EACH EVENING
  20. COLACE [Concomitant]
     Dosage: 100 MG, DAILY (1/D)
     Route: 048
  21. GLUCOSE [Concomitant]

REACTIONS (3)
  - ANKLE FRACTURE [None]
  - BLOOD GLUCOSE INCREASED [None]
  - LOSS OF CONSCIOUSNESS [None]
